FAERS Safety Report 17943074 (Version 3)
Quarter: 2020Q2

REPORT INFORMATION
  Report Type: Report from Study
  Country: IT (occurrence: IT)
  Receive Date: 20200625
  Receipt Date: 20200629
  Transmission Date: 20200714
  Serious: Yes (Hospitalization)
  Sender: FDA-Public Use
  Company Number: IT-ROCHE-2479214

PATIENT
  Age: 64 Year
  Sex: Male
  Weight: 72 kg

DRUGS (5)
  1. PERTUZUMAB. [Suspect]
     Active Substance: PERTUZUMAB
     Indication: HER2 POSITIVE GASTRIC CANCER
     Dosage: DATE OF LAST DOSE PRIOR TO SAE: 27/AUG/2019
     Route: 042
     Dates: start: 20190703
  2. TRASTUZUMAB. [Suspect]
     Active Substance: TRASTUZUMAB
     Indication: HER2 POSITIVE GASTRIC CANCER
     Dosage: DATE OF LAST DOSE PRIOR TO SAE: 27/AUG/2019
     Route: 042
     Dates: start: 20190703
  3. FLUOROURACIL. [Suspect]
     Active Substance: FLUOROURACIL
     Indication: HER2 POSITIVE GASTRIC CANCER
     Dosage: DATE OF LAST DOSE PRIOR TO SAE: 27/AUG/2019?D1-5 IN 3 WEEKLY SCHEDULE OF RATE OF 800 MG/M2/DAY?Q2W (
     Route: 042
     Dates: start: 20190703
  4. CISPLATIN. [Suspect]
     Active Substance: CISPLATIN
     Indication: HER2 POSITIVE GASTRIC CANCER
     Dosage: DATE OF LAST DOSE PRIOR TO SAE: 27/AUG/2019
     Route: 042
     Dates: start: 20190703
  5. AMPICILLIN [Concomitant]
     Active Substance: AMPICILLIN
     Indication: INFECTION PROPHYLAXIS
     Route: 042
     Dates: start: 20191127, end: 20191204

REACTIONS (3)
  - Hyperglycaemia [Recovered/Resolved]
  - Hyponatraemia [Recovered/Resolved]
  - Gastrointestinal anastomotic leak [Recovered/Resolved]

NARRATIVE: CASE EVENT DATE: 20191117
